FAERS Safety Report 5332109-2 (Version None)
Quarter: 2007Q2

REPORT INFORMATION
  Report Type: 
  Country: None (occurrence: None)
  Receive Date: 20070523
  Receipt Date: 20070514
  Transmission Date: 20071010
  Serious: Yes (Other)
  Sender: FDA-Public Use
  Company Number: US-ASTRAZENECA-2007UW08075

PATIENT
  Age: 15054 Day
  Sex: Male
  Weight: 115 kg

DRUGS (2)
  1. SEROQUEL [Suspect]
     Indication: SCHIZOAFFECTIVE DISORDER
     Route: 048
     Dates: start: 20061020, end: 20070420
  2. TRAZODONE HCL [Suspect]
     Indication: INSOMNIA
     Route: 048
     Dates: start: 20070228, end: 20070420

REACTIONS (1)
  - MYOCARDIAL INFARCTION [None]
